FAERS Safety Report 5897676-9 (Version None)
Quarter: 2008Q3

REPORT INFORMATION
  Report Type: 
  Country: None (occurrence: None)
  Receive Date: 20080923
  Receipt Date: 20080909
  Transmission Date: 20090109
  Serious: Yes (Hospitalization, Other)
  Sender: FDA-Public Use
  Company Number: 2008-02912

PATIENT
  Age: 74 Year
  Sex: Male
  Weight: 65 kg

DRUGS (3)
  1. VELCADE [Suspect]
     Indication: MULTIPLE MYELOMA
     Dosage: 2.3 MG, INTRAVENOUS
     Route: 042
     Dates: start: 20080329, end: 20080626
  2. MELPHALAN(MELPHALAN) VIAL [Suspect]
     Indication: MULTIPLE MYELOMA
     Dosage: 16 MG, ORAL
     Route: 048
     Dates: start: 20080329, end: 20080615
  3. METHYLPREDNISOLONE 16MG TAB [Suspect]
     Indication: MULTIPLE MYELOMA
     Dosage: 100 MG, ORAL
     Route: 048
     Dates: start: 20080329, end: 20080615

REACTIONS (5)
  - DYSURIA [None]
  - PROSTATE CANCER [None]
  - PYREXIA [None]
  - STRANGURY [None]
  - UROSEPSIS [None]
